FAERS Safety Report 13904552 (Version 1)
Quarter: 2017Q3

REPORT INFORMATION
  Report Type: Spontaneous
  Country: US (occurrence: US)
  Receive Date: 20170824
  Receipt Date: 20170824
  Transmission Date: 20171127
  Serious: Yes (Other)
  Sender: FDA-Public Use
  Company Number: None

PATIENT
  Age: 42 Year
  Sex: Female
  Weight: 112.5 kg

DRUGS (2)
  1. SANDVOL ESTRIDOIL.075 [Suspect]
     Active Substance: ESTRADIOL
     Indication: ARTIFICIAL MENOPAUSE
     Dosage: ?          OTHER STRENGTH:.075;QUANTITY:8 PATCH(ES);OTHER FREQUENCY:2 TIMES A WEEK;?
     Route: 062
     Dates: start: 20160601, end: 20161101
  2. SANDVOL ESTRIDOIL.075 [Suspect]
     Active Substance: ESTRADIOL
     Indication: HYSTERECTOMY
     Dosage: ?          OTHER STRENGTH:.075;QUANTITY:8 PATCH(ES);OTHER FREQUENCY:2 TIMES A WEEK;?
     Route: 062
     Dates: start: 20160601, end: 20161101

REACTIONS (2)
  - Product substitution issue [None]
  - Drug ineffective [None]

NARRATIVE: CASE EVENT DATE: 20160713
